FAERS Safety Report 12832790 (Version 1)
Quarter: 2016Q4

REPORT INFORMATION
  Report Type: Spontaneous
  Country: RU (occurrence: RU)
  Receive Date: 20161010
  Receipt Date: 20161010
  Transmission Date: 20170207
  Serious: Yes (Other)
  Sender: FDA-Public Use
  Company Number: RU-GLAXOSMITHKLINE-RU2016GSK144952

PATIENT
  Sex: Female

DRUGS (1)
  1. AVAMYS [Suspect]
     Active Substance: FLUTICASONE FUROATE
     Indication: VASOMOTOR RHINITIS
     Dosage: 110 ?G, QD
     Dates: start: 201608, end: 201608

REACTIONS (3)
  - Nasal inflammation [Recovered/Resolved]
  - Nasal congestion [Recovered/Resolved]
  - Asphyxia [Unknown]
